FAERS Safety Report 11324430 (Version 2)
Quarter: 2015Q3

REPORT INFORMATION
  Report Type: Spontaneous
  Country: JP (occurrence: JP)
  Receive Date: 20150730
  Receipt Date: 20150825
  Transmission Date: 20151125
  Serious: Yes (Death, Hospitalization)
  Sender: FDA-Public Use
  Company Number: JP-TEVA-581123ISR

PATIENT
  Age: 72 Year
  Sex: Male

DRUGS (8)
  1. WARFARIN [Suspect]
     Active Substance: WARFARIN
     Route: 048
     Dates: start: 200705
  2. PREDNISOLONE. [Suspect]
     Active Substance: PREDNISOLONE
     Indication: PYODERMA GANGRENOSUM
     Dosage: 20 MILLIGRAM DAILY;
     Route: 048
  3. PREDNISOLONE. [Suspect]
     Active Substance: PREDNISOLONE
     Dosage: 40 MILLIGRAM DAILY;
     Route: 065
  4. DAPSONE. [Concomitant]
     Active Substance: DAPSONE
     Dosage: 50 MG/DAY
     Route: 065
  5. CICLOSPORIN [Concomitant]
     Active Substance: CYCLOSPORINE
     Dosage: 150 MG/DAY
     Route: 065
  6. VITAMIN D [Suspect]
     Active Substance: CHOLECALCIFEROL
     Route: 065
  7. CALCIUM CARBONATE. [Concomitant]
     Active Substance: CALCIUM CARBONATE
     Route: 065
  8. MAXACALCITOL [Concomitant]
     Active Substance: MAXACALCITOL
     Route: 065

REACTIONS (10)
  - Hyperparathyroidism [Unknown]
  - Calciphylaxis [Fatal]
  - Gas gangrene [Fatal]
  - Adverse reaction [Fatal]
  - Enterococcal infection [Fatal]
  - Enterobacter sepsis [Fatal]
  - Enterococcal sepsis [Fatal]
  - Skin ulcer [Fatal]
  - Enterobacter infection [Fatal]
  - Hyperphosphataemia [Unknown]

NARRATIVE: CASE EVENT DATE: 200811
